FAERS Safety Report 4873740-8 (Version None)
Quarter: 2006Q1

REPORT INFORMATION
  Report Type: 
  Country: None (occurrence: None)
  Receive Date: 20060106
  Receipt Date: 20051226
  Transmission Date: 20060701
  Serious: Yes (Death, Other)
  Sender: FDA-Public Use
  Company Number: NSADSS2003001148

PATIENT
  Sex: Female
  Weight: 65.32 kg

DRUGS (4)
  1. REMICADE [Suspect]
     Route: 041
     Dates: start: 20000201
  2. REMICADE [Suspect]
     Route: 041
     Dates: start: 20000201
  3. REMICADE [Suspect]
     Indication: CROHN'S DISEASE
     Route: 041
     Dates: start: 20000201
  4. ENTOCORT [Concomitant]
     Route: 048

REACTIONS (5)
  - COLON CANCER METASTATIC [None]
  - HAEMOGLOBIN DECREASED [None]
  - METASTASES TO LIVER [None]
  - PLATELET COUNT INCREASED [None]
  - PSEUDOPOLYP [None]
